FAERS Safety Report 24593104 (Version 1)
Quarter: 2024Q4

REPORT INFORMATION
  Report Type: Report from Study
  Country: US (occurrence: US)
  Receive Date: 20241108
  Receipt Date: 20241108
  Transmission Date: 20250114
  Serious: Yes (Life-Threatening, Other)
  Sender: ROCHE
  Company Number: US-ROCHE-10000126364

PATIENT

DRUGS (4)
  1. ALTEPLASE [Suspect]
     Active Substance: ALTEPLASE
     Indication: Haematoma
     Dosage: 1 MG OR 10 MG
     Route: 033
  2. ALTEPLASE [Suspect]
     Active Substance: ALTEPLASE
     Indication: Abscess
  3. STREPTODORNASE\STREPTOKINASE [Suspect]
     Active Substance: STREPTODORNASE\STREPTOKINASE
     Indication: Abscess
     Dosage: 5 TO 10 MG
     Route: 033
  4. STREPTODORNASE\STREPTOKINASE [Suspect]
     Active Substance: STREPTODORNASE\STREPTOKINASE
     Indication: Haematoma

REACTIONS (6)
  - Haemorrhage [Unknown]
  - Off label use [Unknown]
  - Off label use [Unknown]
  - Abdominal pain [Unknown]
  - Pancreatitis necrotising [Unknown]
  - Off label use [Unknown]
